FAERS Safety Report 15264266 (Version 1)
Quarter: 2018Q3

REPORT INFORMATION
  Report Type: Spontaneous
  Country: US (occurrence: US)
  Receive Date: 20180721
  Receipt Date: 20180721
  Transmission Date: 20181010
  Serious: Yes (Other)
  Sender: FDA-Public Use
  Company Number: None

PATIENT
  Age: 69 Year
  Sex: Female
  Weight: 67.5 kg

DRUGS (9)
  1. VALSARTAN 80MG [Suspect]
     Active Substance: VALSARTAN
     Indication: HYPERTENSION
     Dosage: ?          QUANTITY:90 TABLET(S);?
     Route: 048
  2. METOPROLOL SUCCI ER [Concomitant]
  3. ALIVE [Concomitant]
  4. SELENIUM [Concomitant]
     Active Substance: SELENIUM
  5. VALSARTAN AND HYDROCHLOROTHIAZIDE [Suspect]
     Active Substance: HYDROCHLOROTHIAZIDE\VALSARTAN
  6. PROBIOTICS [Concomitant]
     Active Substance: PROBIOTICS NOS
  7. MELATONIN [Concomitant]
     Active Substance: MELATONIN
  8. VALSARTAN. [Concomitant]
     Active Substance: VALSARTAN
  9. BABY ASPIRIN [Concomitant]
     Active Substance: ASPIRIN

REACTIONS (1)
  - Renal pain [None]

NARRATIVE: CASE EVENT DATE: 20180601
